FAERS Safety Report 8107091 (Version 4)
Quarter: 2014Q1

REPORT INFORMATION
  Report Type: Spontaneous
  Country: US (occurrence: US)
  Receive Date: 20110825
  Receipt Date: 20140110
  Transmission Date: 20141002
  Serious: Yes (Hospitalization)
  Sender: FDA-Public Use
  Company Number: US-BAYER-2011-075020

PATIENT
  Age: 17 Year
  Sex: Female

DRUGS (10)
  1. YAZ [Suspect]
     Indication: PREMENSTRUAL SYNDROME
     Dosage: UNK
     Dates: start: 2005, end: 2007
  2. YAZ [Suspect]
     Indication: MENSTRUAL CYCLE MANAGEMENT
  3. YASMIN [Suspect]
     Indication: CONTRACEPTION
     Dosage: UNK
     Dates: start: 2005, end: 2007
  4. YASMIN [Suspect]
     Indication: PREMENSTRUAL SYNDROME
  5. YASMIN [Suspect]
     Indication: MENSTRUAL CYCLE MANAGEMENT
  6. TOPOMAX [Concomitant]
     Dosage: UNK
     Dates: start: 2005, end: 2007
  7. INHALER [Concomitant]
     Dosage: UNK
     Dates: start: 2000
  8. MOTRIN [Concomitant]
  9. ROBINUL [Concomitant]
  10. SARAFEM [Concomitant]

REACTIONS (5)
  - Gallbladder injury [Unknown]
  - Cholecystitis chronic [None]
  - Injury [Unknown]
  - Pain [Unknown]
  - Off label use [None]
